FAERS Safety Report 6499851-1 (Version None)
Quarter: 2009Q4

REPORT INFORMATION
  Report Type: 
  Country: None (occurrence: None)
  Receive Date: 20091214
  Receipt Date: 20091214
  Transmission Date: 20100525
  Serious: Yes (Life-Threatening, Hospitalization)
  Sender: FDA-Public Use
  Company Number: None

PATIENT
  Age: 71 Year
  Sex: Female

DRUGS (7)
  1. HEPARIN [Suspect]
     Indication: THROMBOSIS
     Dosage: VARIABLE CONTINUOUS IV DRIP
     Route: 041
     Dates: start: 20090326, end: 20090328
  2. ASPIRIN [Suspect]
     Indication: PROPHYLAXIS
     Dosage: 325 MG DAILY PO
     Route: 048
     Dates: end: 20090327
  3. LISINOPRIL [Concomitant]
  4. METOPROLOL TARTRATE [Concomitant]
  5. ATORVASTATIN CALCIUM [Concomitant]
  6. EPTIFIBATIDE DRIP [Concomitant]
  7. ENOXAPARIN [Concomitant]

REACTIONS (3)
  - EMBOLIC STROKE [None]
  - HAEMORRHAGE INTRACRANIAL [None]
  - INTRACARDIAC THROMBUS [None]
